FAERS Safety Report 8886221 (Version 1)
Quarter: 2020Q3

REPORT INFORMATION
  Report Type: Spontaneous
  Country: DE (occurrence: DE)
  Receive Date: 20121105
  Receipt Date: 20121105
  Transmission Date: 20201105
  Serious: Yes (Death, Hospitalization)
  Sender: FDA-Public Use
  Company Number: DE-JNJFOC-20121015984

PATIENT

DRUGS (228)
  1. FUROSEMIDE. [Suspect]
     Active Substance: FUROSEMIDE
     Indication: PRODUCT USED FOR UNKNOWN INDICATION
     Route: 065
  2. SIMVASTATIN. [Suspect]
     Active Substance: SIMVASTATIN
     Indication: PRODUCT USED FOR UNKNOWN INDICATION
     Route: 065
  3. MORPHINE [Suspect]
     Active Substance: MORPHINE
     Indication: DRUG ABUSE
     Route: 065
  4. INSULIN [Suspect]
     Active Substance: INSULIN NOS
     Indication: DRUG ABUSE
     Route: 065
  5. ENOXAPARIN [Suspect]
     Active Substance: ENOXAPARIN
     Indication: DRUG ABUSE
     Route: 065
  6. FLUNITRAZEPAM [Suspect]
     Active Substance: FLUNITRAZEPAM
     Indication: DRUG ABUSE
     Route: 065
  7. THYROXIN [Suspect]
     Active Substance: LEVOTHYROXINE
     Indication: PRODUCT USED FOR UNKNOWN INDICATION
     Route: 065
  8. AMITRIPTYLINOXIDE [Suspect]
     Active Substance: AMITRIPTYLINOXIDE
     Indication: PRODUCT USED FOR UNKNOWN INDICATION
     Route: 065
  9. NORDIAZEPAM [Suspect]
     Active Substance: NORDAZEPAM
     Indication: DRUG ABUSE
     Route: 065
  10. PYRIDOXINE [Suspect]
     Active Substance: PYRIDOXINE
     Indication: DRUG ABUSE
     Route: 065
  11. MULTIPLE OTHER MEDICATIONS [Suspect]
     Active Substance: UNSPECIFIED INGREDIENT
     Indication: PRODUCT USED FOR UNKNOWN INDICATION
     Route: 065
  12. FENTANYL. [Suspect]
     Active Substance: FENTANYL
     Indication: PRODUCT USED FOR UNKNOWN INDICATION
     Route: 065
  13. RISPERIDONE. [Suspect]
     Active Substance: RISPERIDONE
     Indication: PRODUCT USED FOR UNKNOWN INDICATION
     Route: 065
  14. OFLOXACIN. [Suspect]
     Active Substance: OFLOXACIN
     Indication: DRUG ABUSE
     Route: 065
  15. NOSCAPINE [Suspect]
     Active Substance: NOSCAPINE
     Indication: DRUG ABUSE
     Route: 065
  16. CATHINE [Suspect]
     Active Substance: CATHINE
     Indication: DRUG ABUSE
     Route: 065
  17. CARBAMAZEPINE. [Suspect]
     Active Substance: CARBAMAZEPINE
     Indication: DRUG ABUSE
     Route: 065
  18. PHENAZONE [Suspect]
     Active Substance: ANTIPYRINE
     Indication: DRUG ABUSE
     Route: 065
  19. PHENAZONE [Suspect]
     Active Substance: ANTIPYRINE
     Indication: PRODUCT USED FOR UNKNOWN INDICATION
     Route: 065
  20. BETAZOLE [Suspect]
     Active Substance: BETAZOLE
     Indication: DRUG ABUSE
     Route: 065
  21. QUETIAPINE. [Suspect]
     Active Substance: QUETIAPINE
     Indication: PRODUCT USED FOR UNKNOWN INDICATION
     Route: 065
  22. ZOLPIDEM [Suspect]
     Active Substance: ZOLPIDEM TARTRATE
     Indication: DRUG ABUSE
     Route: 065
  23. CIPROFLOXACIN. [Suspect]
     Active Substance: CIPROFLOXACIN
     Indication: PRODUCT USED FOR UNKNOWN INDICATION
     Route: 065
  24. PAPAVERINE [Suspect]
     Active Substance: PAPAVERINE
     Indication: PRODUCT USED FOR UNKNOWN INDICATION
     Route: 065
  25. VERAPAMIL [Suspect]
     Active Substance: VERAPAMIL HYDROCHLORIDE
     Indication: PRODUCT USED FOR UNKNOWN INDICATION
     Route: 065
  26. CLOZAPINE. [Suspect]
     Active Substance: CLOZAPINE
     Indication: PRODUCT USED FOR UNKNOWN INDICATION
     Route: 065
  27. IMIPRAMINE [Suspect]
     Active Substance: IMIPRAMINE
     Indication: PRODUCT USED FOR UNKNOWN INDICATION
     Route: 065
  28. BISOPROLOL [Suspect]
     Active Substance: BISOPROLOL
     Indication: DRUG ABUSE
     Route: 065
  29. BISOPROLOL [Suspect]
     Active Substance: BISOPROLOL
     Indication: PRODUCT USED FOR UNKNOWN INDICATION
     Route: 065
  30. DYCLONINE [Suspect]
     Active Substance: DYCLONINE
     Indication: DRUG ABUSE
     Route: 065
  31. TIAPRIDE [Suspect]
     Active Substance: TIAPRIDE
     Indication: DRUG ABUSE
     Route: 065
  32. TRANYLCYPROMINE [Suspect]
     Active Substance: TRANYLCYPROMINE
     Indication: PRODUCT USED FOR UNKNOWN INDICATION
     Route: 065
  33. METAMIZOL [Suspect]
     Active Substance: METAMIZOLE SODIUM
     Indication: PRODUCT USED FOR UNKNOWN INDICATION
     Route: 065
  34. ACETYL SALICYLIC ACID [Suspect]
     Active Substance: ASPIRIN
     Indication: DRUG ABUSE
     Route: 065
  35. ACETYL SALICYLIC ACID [Suspect]
     Active Substance: ASPIRIN
     Indication: PRODUCT USED FOR UNKNOWN INDICATION
     Route: 065
  36. PHENPROCOUMON [Suspect]
     Active Substance: PHENPROCOUMON
     Indication: DRUG ABUSE
     Route: 065
  37. FUROSEMIDE. [Suspect]
     Active Substance: FUROSEMIDE
     Indication: DRUG ABUSE
     Route: 065
  38. SIMVASTATIN. [Suspect]
     Active Substance: SIMVASTATIN
     Indication: DRUG ABUSE
     Route: 065
  39. INSULIN [Suspect]
     Active Substance: INSULIN NOS
     Indication: PRODUCT USED FOR UNKNOWN INDICATION
     Route: 065
  40. AMIODARONE [Suspect]
     Active Substance: AMIODARONE
     Indication: DRUG ABUSE
     Route: 065
  41. AMIODARONE [Suspect]
     Active Substance: AMIODARONE
     Indication: PRODUCT USED FOR UNKNOWN INDICATION
     Route: 065
  42. CLINDAMYCIN. [Suspect]
     Active Substance: CLINDAMYCIN
     Indication: DRUG ABUSE
     Route: 065
  43. PRIMIDONE. [Suspect]
     Active Substance: PRIMIDONE
     Indication: DRUG ABUSE
     Route: 065
  44. PRIMIDONE. [Suspect]
     Active Substance: PRIMIDONE
     Indication: PRODUCT USED FOR UNKNOWN INDICATION
     Route: 065
  45. LINEZOLID. [Suspect]
     Active Substance: LINEZOLID
     Indication: PRODUCT USED FOR UNKNOWN INDICATION
     Route: 065
  46. BUPRENORPHINE. [Suspect]
     Active Substance: BUPRENORPHINE
     Indication: DRUG ABUSE
     Route: 065
  47. FENTANYL. [Suspect]
     Active Substance: FENTANYL
     Indication: DRUG ABUSE
     Route: 065
  48. IBUPROFEN. [Suspect]
     Active Substance: IBUPROFEN
     Indication: PRODUCT USED FOR UNKNOWN INDICATION
     Route: 065
  49. AMPHETAMINE [Suspect]
     Active Substance: AMPHETAMINE
     Indication: DRUG ABUSE
     Route: 065
  50. OXYCODONE [Suspect]
     Active Substance: OXYCODONE
     Indication: DRUG ABUSE
     Route: 065
  51. METOPROLOL. [Suspect]
     Active Substance: METOPROLOL
     Indication: DRUG ABUSE
     Route: 065
  52. DICLOFENAC [Suspect]
     Active Substance: DICLOFENAC
     Indication: PRODUCT USED FOR UNKNOWN INDICATION
     Route: 065
  53. DIPHENHYDRAMINE. [Suspect]
     Active Substance: DIPHENHYDRAMINE
     Indication: DRUG ABUSE
     Route: 065
  54. NORDAZEPAM [Suspect]
     Active Substance: NORDAZEPAM
     Indication: PRODUCT USED FOR UNKNOWN INDICATION
     Route: 065
  55. TRIMETHOPRIM. [Suspect]
     Active Substance: TRIMETHOPRIM
     Indication: DRUG ABUSE
     Route: 065
  56. CITALOPRAM [Suspect]
     Active Substance: CITALOPRAM HYDROBROMIDE
     Indication: DRUG ABUSE
     Route: 065
  57. CITALOPRAM [Suspect]
     Active Substance: CITALOPRAM HYDROBROMIDE
     Indication: PRODUCT USED FOR UNKNOWN INDICATION
     Route: 065
  58. MIDAZOLAM HYDROCHLORIDE. [Suspect]
     Active Substance: MIDAZOLAM HYDROCHLORIDE
     Indication: PRODUCT USED FOR UNKNOWN INDICATION
     Route: 065
  59. PRILOCAINE [Suspect]
     Active Substance: PRILOCAINE
     Indication: DRUG ABUSE
     Route: 065
  60. CLOZAPINE. [Suspect]
     Active Substance: CLOZAPINE
     Indication: DRUG ABUSE
     Route: 065
  61. DENATONIUM BENZOATE [Suspect]
     Active Substance: DENATONIUM BENZOATE
     Indication: DRUG ABUSE
     Route: 065
  62. VENLAFAXINE [Suspect]
     Active Substance: VENLAFAXINE HYDROCHLORIDE
     Indication: DRUG ABUSE
     Route: 065
  63. BROMAZEPAM [Suspect]
     Active Substance: BROMAZEPAM
     Indication: PRODUCT USED FOR UNKNOWN INDICATION
     Route: 065
  64. DIHYDROCODEINE [Suspect]
     Active Substance: DIHYDROCODEINE
     Indication: DRUG ABUSE
     Route: 065
  65. MEMANTINE. [Suspect]
     Active Substance: MEMANTINE
     Indication: DRUG ABUSE
     Route: 065
  66. MEMANTINE. [Suspect]
     Active Substance: MEMANTINE
     Indication: PRODUCT USED FOR UNKNOWN INDICATION
     Route: 065
  67. PETHIDINE [Suspect]
     Active Substance: MEPERIDINE
     Indication: DRUG ABUSE
     Route: 065
  68. HEROIN [Suspect]
     Active Substance: DIAMORPHINE
     Indication: DRUG ABUSE
     Route: 065
  69. TETRAZEPAM [Suspect]
     Active Substance: TETRAZEPAM
     Indication: PRODUCT USED FOR UNKNOWN INDICATION
     Route: 065
  70. TRANYLCYPROMINE [Suspect]
     Active Substance: TRANYLCYPROMINE
     Indication: DRUG ABUSE
     Route: 065
  71. METAMIZOL [Suspect]
     Active Substance: METAMIZOLE SODIUM
     Indication: DRUG ABUSE
     Route: 065
  72. MORPHINE [Suspect]
     Active Substance: MORPHINE
     Indication: PRODUCT USED FOR UNKNOWN INDICATION
     Route: 065
  73. PHENOBARBITAL. [Suspect]
     Active Substance: PHENOBARBITAL
     Indication: PRODUCT USED FOR UNKNOWN INDICATION
     Route: 065
  74. ALLOPURINOL. [Suspect]
     Active Substance: ALLOPURINOL
     Indication: PRODUCT USED FOR UNKNOWN INDICATION
     Route: 065
  75. CLINDAMYCIN. [Suspect]
     Active Substance: CLINDAMYCIN
     Indication: PRODUCT USED FOR UNKNOWN INDICATION
     Route: 065
  76. NORDIAZEPAM [Suspect]
     Active Substance: NORDAZEPAM
     Indication: PRODUCT USED FOR UNKNOWN INDICATION
     Route: 065
  77. PYRIDOXINE [Suspect]
     Active Substance: PYRIDOXINE
     Indication: PRODUCT USED FOR UNKNOWN INDICATION
     Route: 065
  78. METRONIDAZOLE. [Suspect]
     Active Substance: METRONIDAZOLE
     Indication: DRUG ABUSE
     Route: 065
  79. METRONIDAZOLE. [Suspect]
     Active Substance: METRONIDAZOLE
     Indication: PRODUCT USED FOR UNKNOWN INDICATION
     Route: 065
  80. MULTIPLE OTHER MEDICATIONS [Suspect]
     Active Substance: UNSPECIFIED INGREDIENT
     Indication: PRODUCT USED FOR UNKNOWN INDICATION
     Route: 065
  81. OFLOXACIN. [Suspect]
     Active Substance: OFLOXACIN
     Indication: PRODUCT USED FOR UNKNOWN INDICATION
     Route: 065
  82. LEVAMISOLE HYDROCHLORIDE [Suspect]
     Active Substance: LEVAMISOLE HYDROCHLORIDE
     Indication: PRODUCT USED FOR UNKNOWN INDICATION
     Route: 065
  83. PIPAMPERONE [Suspect]
     Active Substance: PIPAMPERONE
     Indication: DRUG ABUSE
     Route: 065
  84. METHAMPHETAMINE [Suspect]
     Active Substance: METHAMPHETAMINE
     Indication: PRODUCT USED FOR UNKNOWN INDICATION
     Route: 065
  85. HYDROMORPHONE [Suspect]
     Active Substance: HYDROMORPHONE
     Indication: PRODUCT USED FOR UNKNOWN INDICATION
     Route: 065
  86. OXYCODONE [Suspect]
     Active Substance: OXYCODONE
     Indication: PRODUCT USED FOR UNKNOWN INDICATION
     Route: 065
  87. CATHINE [Suspect]
     Active Substance: CATHINE
     Indication: PRODUCT USED FOR UNKNOWN INDICATION
     Route: 065
  88. HYDROXYZINE [Suspect]
     Active Substance: HYDROXYZINE HYDROCHLORIDE
     Indication: DRUG ABUSE
     Route: 065
  89. METOCLOPRAMIDE. [Suspect]
     Active Substance: METOCLOPRAMIDE
     Indication: PRODUCT USED FOR UNKNOWN INDICATION
     Route: 065
  90. LIDOCAINE. [Suspect]
     Active Substance: LIDOCAINE
     Indication: DRUG ABUSE
     Route: 065
  91. DICLOFENAC [Suspect]
     Active Substance: DICLOFENAC
     Indication: DRUG ABUSE
     Route: 065
  92. DOXEPIN [Suspect]
     Active Substance: DOXEPIN
     Indication: PRODUCT USED FOR UNKNOWN INDICATION
     Route: 065
  93. AMITRIPTYLINE [Suspect]
     Active Substance: AMITRIPTYLINE
     Indication: DRUG ABUSE
     Route: 065
  94. AMITRIPTYLINE [Suspect]
     Active Substance: AMITRIPTYLINE
     Indication: PRODUCT USED FOR UNKNOWN INDICATION
     Route: 065
  95. PILOCARPINE. [Suspect]
     Active Substance: PILOCARPINE
     Indication: PRODUCT USED FOR UNKNOWN INDICATION
     Route: 065
  96. MIDAZOLAM HYDROCHLORIDE. [Suspect]
     Active Substance: MIDAZOLAM HYDROCHLORIDE
     Indication: DRUG ABUSE
     Route: 065
  97. PROPYPHENAZONE [Suspect]
     Active Substance: PROPYPHENAZONE
     Indication: DRUG ABUSE
     Route: 065
  98. AMISULPRIDE [Suspect]
     Active Substance: AMISULPRIDE
     Indication: PRODUCT USED FOR UNKNOWN INDICATION
     Route: 065
  99. IMIPRAMINE [Suspect]
     Active Substance: IMIPRAMINE
     Indication: DRUG ABUSE
     Route: 065
  100. TORASEMIDE [Suspect]
     Active Substance: TORSEMIDE
     Indication: DRUG ABUSE
     Route: 065
  101. VENLAFAXINE [Suspect]
     Active Substance: VENLAFAXINE HYDROCHLORIDE
     Indication: PRODUCT USED FOR UNKNOWN INDICATION
     Route: 065
  102. ATROPINE. [Suspect]
     Active Substance: ATROPINE
     Indication: DRUG ABUSE
     Route: 065
  103. ATROPINE. [Suspect]
     Active Substance: ATROPINE
     Indication: PRODUCT USED FOR UNKNOWN INDICATION
     Route: 065
  104. CANRENONE [Suspect]
     Active Substance: CANRENONE
     Indication: DRUG ABUSE
     Route: 065
  105. PHENPROCOUMON [Suspect]
     Active Substance: PHENPROCOUMON
     Indication: PRODUCT USED FOR UNKNOWN INDICATION
     Route: 065
  106. PHENOBARBITAL. [Suspect]
     Active Substance: PHENOBARBITAL
     Indication: DRUG ABUSE
     Route: 065
  107. CLEMASTINE [Suspect]
     Active Substance: CLEMASTINE
     Indication: PRODUCT USED FOR UNKNOWN INDICATION
     Route: 065
  108. OPIPRAMOL [Suspect]
     Active Substance: OPIPRAMOL
     Indication: PRODUCT USED FOR UNKNOWN INDICATION
     Route: 065
  109. MULTIPLE OTHER MEDICATIONS [Suspect]
     Active Substance: UNSPECIFIED INGREDIENT
     Indication: DRUG ABUSE
     Route: 065
  110. HYOSCYAMINE. [Suspect]
     Active Substance: HYOSCYAMINE
     Indication: DRUG ABUSE
     Route: 065
  111. LEVOMEPROMAZINE [Suspect]
     Active Substance: LEVOMEPROMAZINE
     Indication: DRUG ABUSE
     Route: 065
  112. PETHIDINE [Suspect]
     Active Substance: MEPERIDINE
     Indication: PRODUCT USED FOR UNKNOWN INDICATION
     Route: 065
  113. OMEPRAZOLE. [Suspect]
     Active Substance: OMEPRAZOLE
     Indication: PRODUCT USED FOR UNKNOWN INDICATION
     Route: 065
  114. VALPROMIDE [Suspect]
     Active Substance: VALPROMIDE
     Indication: DRUG ABUSE
     Route: 065
  115. LORAZEPAM. [Suspect]
     Active Substance: LORAZEPAM
     Indication: DRUG ABUSE
     Route: 065
  116. LORAZEPAM. [Suspect]
     Active Substance: LORAZEPAM
     Indication: PRODUCT USED FOR UNKNOWN INDICATION
     Route: 065
  117. SALBUTAMOL [Suspect]
     Active Substance: ALBUTEROL
     Indication: PRODUCT USED FOR UNKNOWN INDICATION
     Route: 065
  118. MULTIPLE OTHER MEDICATIONS [Suspect]
     Active Substance: UNSPECIFIED INGREDIENT
     Indication: PRODUCT USED FOR UNKNOWN INDICATION
     Route: 065
  119. RISPERIDONE. [Suspect]
     Active Substance: RISPERIDONE
     Indication: DRUG ABUSE
     Route: 065
  120. AMBROXOL [Suspect]
     Active Substance: AMBROXOL
     Indication: PRODUCT USED FOR UNKNOWN INDICATION
     Route: 065
  121. NOSCAPINE [Suspect]
     Active Substance: NOSCAPINE
     Indication: PRODUCT USED FOR UNKNOWN INDICATION
     Route: 065
  122. TILIDINE [Suspect]
     Active Substance: TILIDINE
     Indication: DRUG ABUSE
     Route: 065
  123. HYDROXYZINE [Suspect]
     Active Substance: HYDROXYZINE HYDROCHLORIDE
     Indication: PRODUCT USED FOR UNKNOWN INDICATION
     Route: 065
  124. DIPHENHYDRAMINE. [Suspect]
     Active Substance: DIPHENHYDRAMINE
     Indication: PRODUCT USED FOR UNKNOWN INDICATION
     Route: 065
  125. NORDAZEPAM [Suspect]
     Active Substance: NORDAZEPAM
     Indication: DRUG ABUSE
     Route: 065
  126. ONDANSETRON [Suspect]
     Active Substance: ONDANSETRON
     Indication: DRUG ABUSE
     Route: 065
  127. TRIMIPRAMINE [Suspect]
     Active Substance: TRIMIPRAMINE
     Indication: DRUG ABUSE
     Route: 065
  128. PROMETHAZINE [Suspect]
     Active Substance: PROMETHAZINE HYDROCHLORIDE
     Indication: DRUG ABUSE
     Route: 065
  129. ZOPICLONE [Suspect]
     Active Substance: ZOPICLONE
     Indication: PRODUCT USED FOR UNKNOWN INDICATION
     Route: 065
  130. EMEPRONIUM [Suspect]
     Active Substance: EMEPRONIUM
     Indication: DRUG ABUSE
     Route: 065
  131. PAPAVERINE [Suspect]
     Active Substance: PAPAVERINE
     Indication: DRUG ABUSE
     Route: 065
  132. PROPYPHENAZONE [Suspect]
     Active Substance: PROPYPHENAZONE
     Indication: PRODUCT USED FOR UNKNOWN INDICATION
     Route: 065
  133. FLUCONAZOLE. [Suspect]
     Active Substance: FLUCONAZOLE
     Indication: PRODUCT USED FOR UNKNOWN INDICATION
     Route: 065
  134. METHADONE [Suspect]
     Active Substance: METHADONE HYDROCHLORIDE
     Indication: PRODUCT USED FOR UNKNOWN INDICATION
     Route: 065
  135. SULFADIAZINE. [Suspect]
     Active Substance: SULFADIAZINE
     Indication: DRUG ABUSE
     Route: 065
  136. HYOSCYAMINE. [Suspect]
     Active Substance: HYOSCYAMINE
     Indication: PRODUCT USED FOR UNKNOWN INDICATION
     Route: 065
  137. TETRAZEPAM [Suspect]
     Active Substance: TETRAZEPAM
     Indication: DRUG ABUSE
     Route: 065
  138. PANTOPRAZOL [Suspect]
     Active Substance: PANTOPRAZOLE SODIUM
     Indication: DRUG ABUSE
     Route: 065
  139. AMLODIPINE [Suspect]
     Active Substance: AMLODIPINE BESYLATE
     Indication: DRUG ABUSE
     Route: 065
  140. FLUNITRAZEPAM [Suspect]
     Active Substance: FLUNITRAZEPAM
     Indication: PRODUCT USED FOR UNKNOWN INDICATION
     Route: 065
  141. L ? THYROXIN [Suspect]
     Active Substance: LEVOTHYROXINE
     Indication: DRUG ABUSE
     Route: 065
  142. SALBUTAMOL [Suspect]
     Active Substance: ALBUTEROL
     Indication: DRUG ABUSE
     Route: 065
  143. TRIPELENNAMINE [Suspect]
     Active Substance: TRIPELENNAMINE
     Indication: PRODUCT USED FOR UNKNOWN INDICATION
     Route: 065
  144. BUPRENORPHINE. [Suspect]
     Active Substance: BUPRENORPHINE
     Indication: PRODUCT USED FOR UNKNOWN INDICATION
     Route: 065
  145. TRAMADOL HYDROCHLORIDE. [Suspect]
     Active Substance: TRAMADOL HYDROCHLORIDE
     Indication: PRODUCT USED FOR UNKNOWN INDICATION
     Route: 065
  146. LEVAMISOLE HYDROCHLORIDE [Suspect]
     Active Substance: LEVAMISOLE HYDROCHLORIDE
     Indication: DRUG ABUSE
     Route: 065
  147. IBUPROFEN. [Suspect]
     Active Substance: IBUPROFEN
     Indication: DRUG ABUSE
     Route: 065
  148. AMPHETAMINE [Suspect]
     Active Substance: AMPHETAMINE
     Indication: PRODUCT USED FOR UNKNOWN INDICATION
     Route: 065
  149. KETAMINE [Suspect]
     Active Substance: KETAMINE
     Indication: PRODUCT USED FOR UNKNOWN INDICATION
     Route: 065
  150. COCAINE [Suspect]
     Active Substance: COCAINE
     Indication: PRODUCT USED FOR UNKNOWN INDICATION
     Route: 065
  151. PARACETAMOL [Suspect]
     Active Substance: ACETAMINOPHEN
     Indication: DRUG ABUSE
     Route: 065
  152. METOCLOPRAMIDE. [Suspect]
     Active Substance: METOCLOPRAMIDE
     Indication: DRUG ABUSE
     Route: 065
  153. LIDOCAINE. [Suspect]
     Active Substance: LIDOCAINE
     Indication: PRODUCT USED FOR UNKNOWN INDICATION
     Route: 065
  154. DIAZEPAM. [Suspect]
     Active Substance: DIAZEPAM
     Indication: DRUG ABUSE
     Route: 065
  155. MIRTAZAPINE. [Suspect]
     Active Substance: MIRTAZAPINE
     Indication: DRUG ABUSE
     Route: 065
  156. DOXYLAMINE [Suspect]
     Active Substance: DOXYLAMINE
     Indication: PRODUCT USED FOR UNKNOWN INDICATION
     Route: 065
  157. ONDANSETRON [Suspect]
     Active Substance: ONDANSETRON
     Indication: PRODUCT USED FOR UNKNOWN INDICATION
     Route: 065
  158. TRIMIPRAMINE [Suspect]
     Active Substance: TRIMIPRAMINE
     Indication: PRODUCT USED FOR UNKNOWN INDICATION
     Route: 065
  159. PILOCARPINE. [Suspect]
     Active Substance: PILOCARPINE
     Indication: DRUG ABUSE
     Route: 065
  160. CLARITHROMYCIN. [Suspect]
     Active Substance: CLARITHROMYCIN
     Indication: DRUG ABUSE
     Route: 065
  161. VERAPAMIL [Suspect]
     Active Substance: VERAPAMIL HYDROCHLORIDE
     Indication: DRUG ABUSE
     Route: 065
  162. DIHYDROCODEINE [Suspect]
     Active Substance: DIHYDROCODEINE
     Indication: PRODUCT USED FOR UNKNOWN INDICATION
     Route: 065
  163. LEVOMEPROMAZINE [Suspect]
     Active Substance: LEVOMEPROMAZINE
     Indication: PRODUCT USED FOR UNKNOWN INDICATION
     Route: 065
  164. VALPROMIDE [Suspect]
     Active Substance: VALPROMIDE
     Indication: PRODUCT USED FOR UNKNOWN INDICATION
     Route: 065
  165. CODEINE [Suspect]
     Active Substance: CODEINE
     Indication: PRODUCT USED FOR UNKNOWN INDICATION
     Route: 065
  166. AMLODIPINE [Suspect]
     Active Substance: AMLODIPINE BESYLATE
     Indication: PRODUCT USED FOR UNKNOWN INDICATION
     Route: 065
  167. ALLOPURINOL. [Suspect]
     Active Substance: ALLOPURINOL
     Indication: DRUG ABUSE
     Route: 065
  168. NALOXONE [Suspect]
     Active Substance: NALOXONE
     Indication: DRUG ABUSE
     Route: 065
  169. NALOXONE [Suspect]
     Active Substance: NALOXONE
     Indication: PRODUCT USED FOR UNKNOWN INDICATION
     Route: 065
  170. AMITRIPTYLINOXIDE [Suspect]
     Active Substance: AMITRIPTYLINOXIDE
     Indication: DRUG ABUSE
     Route: 065
  171. OPIPRAMOL [Suspect]
     Active Substance: OPIPRAMOL
     Indication: DRUG ABUSE
     Route: 065
  172. MULTIPLE OTHER MEDICATIONS [Suspect]
     Active Substance: UNSPECIFIED INGREDIENT
     Indication: DRUG ABUSE
     Route: 065
  173. TRAMADOL HYDROCHLORIDE. [Suspect]
     Active Substance: TRAMADOL HYDROCHLORIDE
     Indication: DRUG ABUSE
     Route: 065
  174. HALOPERIDOL. [Suspect]
     Active Substance: HALOPERIDOL
     Indication: PRODUCT USED FOR UNKNOWN INDICATION
     Route: 065
  175. AMBROXOL [Suspect]
     Active Substance: AMBROXOL
     Indication: DRUG ABUSE
     Route: 065
  176. PIPAMPERONE [Suspect]
     Active Substance: PIPAMPERONE
     Indication: PRODUCT USED FOR UNKNOWN INDICATION
     Route: 065
  177. METHAMPHETAMINE [Suspect]
     Active Substance: METHAMPHETAMINE
     Indication: DRUG ABUSE
     Route: 065
  178. METHADONE [Suspect]
     Active Substance: METHADONE HYDROCHLORIDE
     Indication: DRUG ABUSE
     Route: 065
  179. HYDROMORPHONE [Suspect]
     Active Substance: HYDROMORPHONE
     Indication: DRUG ABUSE
     Route: 065
  180. PHENACETIN [Suspect]
     Active Substance: PHENACETIN
     Indication: PRODUCT USED FOR UNKNOWN INDICATION
     Route: 065
  181. DIAZEPAM. [Suspect]
     Active Substance: DIAZEPAM
     Indication: PRODUCT USED FOR UNKNOWN INDICATION
     Route: 065
  182. DOXEPIN [Suspect]
     Active Substance: DOXEPIN
     Indication: DRUG ABUSE
     Route: 065
  183. DOXYLAMINE [Suspect]
     Active Substance: DOXYLAMINE
     Indication: DRUG ABUSE
     Route: 065
  184. MELPERONE [Suspect]
     Active Substance: MELPERONE
     Indication: DRUG ABUSE
     Route: 065
  185. MELPERONE [Suspect]
     Active Substance: MELPERONE
     Indication: PRODUCT USED FOR UNKNOWN INDICATION
     Route: 065
  186. PRILOCAINE [Suspect]
     Active Substance: PRILOCAINE
     Indication: PRODUCT USED FOR UNKNOWN INDICATION
     Route: 065
  187. METHADONE [Suspect]
     Active Substance: METHADONE HYDROCHLORIDE
     Indication: DRUG ABUSE
     Route: 065
  188. SULFAMETHOXAZOLE [Suspect]
     Active Substance: SULFAMETHOXAZOLE
     Indication: PRODUCT USED FOR UNKNOWN INDICATION
     Route: 065
  189. TIAPRIDE [Suspect]
     Active Substance: TIAPRIDE
     Indication: PRODUCT USED FOR UNKNOWN INDICATION
     Route: 065
  190. PANTOPRAZOL [Suspect]
     Active Substance: PANTOPRAZOLE SODIUM
     Indication: PRODUCT USED FOR UNKNOWN INDICATION
     Route: 065
  191. CLEMASTINE [Suspect]
     Active Substance: CLEMASTINE
     Indication: DRUG ABUSE
     Route: 065
  192. ENOXAPARIN [Suspect]
     Active Substance: ENOXAPARIN
     Indication: PRODUCT USED FOR UNKNOWN INDICATION
     Route: 065
  193. TRIPELENNAMINE [Suspect]
     Active Substance: TRIPELENNAMINE
     Indication: DRUG ABUSE
     Route: 065
  194. LINEZOLID. [Suspect]
     Active Substance: LINEZOLID
     Indication: DRUG ABUSE
     Route: 065
  195. MULTIPLE OTHER MEDICATIONS [Suspect]
     Active Substance: UNSPECIFIED INGREDIENT
     Indication: DRUG ABUSE
     Route: 065
  196. METHADONE [Suspect]
     Active Substance: METHADONE HYDROCHLORIDE
     Indication: PRODUCT USED FOR UNKNOWN INDICATION
     Route: 065
  197. COCAINE [Suspect]
     Active Substance: COCAINE
     Indication: DRUG ABUSE
     Route: 065
  198. PARACETAMOL [Suspect]
     Active Substance: ACETAMINOPHEN
     Indication: PRODUCT USED FOR UNKNOWN INDICATION
     Route: 065
  199. METOPROLOL. [Suspect]
     Active Substance: METOPROLOL
     Indication: PRODUCT USED FOR UNKNOWN INDICATION
     Route: 065
  200. TRIMETHOPRIM. [Suspect]
     Active Substance: TRIMETHOPRIM
     Indication: PRODUCT USED FOR UNKNOWN INDICATION
     Route: 065
  201. NORTRIPTYLINE [Suspect]
     Active Substance: NORTRIPTYLINE
     Indication: PRODUCT USED FOR UNKNOWN INDICATION
     Route: 065
  202. CARBAMAZEPINE. [Suspect]
     Active Substance: CARBAMAZEPINE
     Indication: PRODUCT USED FOR UNKNOWN INDICATION
     Route: 065
  203. QUETIAPINE. [Suspect]
     Active Substance: QUETIAPINE
     Indication: DRUG ABUSE
     Route: 065
  204. CIPROFLOXACIN. [Suspect]
     Active Substance: CIPROFLOXACIN
     Indication: DRUG ABUSE
     Route: 065
  205. PROMETHAZINE [Suspect]
     Active Substance: PROMETHAZINE HYDROCHLORIDE
     Indication: PRODUCT USED FOR UNKNOWN INDICATION
     Route: 065
  206. ZOPICLONE [Suspect]
     Active Substance: ZOPICLONE
     Indication: DRUG ABUSE
     Route: 065
  207. AMISULPRIDE [Suspect]
     Active Substance: AMISULPRIDE
     Indication: DRUG ABUSE
     Route: 065
  208. FLUCONAZOLE. [Suspect]
     Active Substance: FLUCONAZOLE
     Indication: DRUG ABUSE
     Route: 065
  209. SULFADIAZINE. [Suspect]
     Active Substance: SULFADIAZINE
     Indication: PRODUCT USED FOR UNKNOWN INDICATION
     Route: 065
  210. TORASEMIDE [Suspect]
     Active Substance: TORSEMIDE
     Indication: PRODUCT USED FOR UNKNOWN INDICATION
     Route: 065
  211. CANRENONE [Suspect]
     Active Substance: CANRENONE
     Indication: PRODUCT USED FOR UNKNOWN INDICATION
     Route: 065
  212. DYCLONINE [Suspect]
     Active Substance: DYCLONINE
     Indication: PRODUCT USED FOR UNKNOWN INDICATION
     Route: 065
  213. OMEPRAZOLE. [Suspect]
     Active Substance: OMEPRAZOLE
     Indication: DRUG ABUSE
     Route: 065
  214. HEROIN [Suspect]
     Active Substance: DIAMORPHINE
     Indication: PRODUCT USED FOR UNKNOWN INDICATION
     Route: 065
  215. SULFAMETHOXAZOLE [Suspect]
     Active Substance: SULFAMETHOXAZOLE
     Indication: DRUG ABUSE
     Route: 065
  216. CODEINE [Suspect]
     Active Substance: CODEINE
     Indication: DRUG ABUSE
     Route: 065
  217. HALOPERIDOL. [Suspect]
     Active Substance: HALOPERIDOL
     Indication: DRUG ABUSE
     Route: 065
  218. TILIDINE [Suspect]
     Active Substance: TILIDINE
     Indication: PRODUCT USED FOR UNKNOWN INDICATION
     Route: 065
  219. KETAMINE [Suspect]
     Active Substance: KETAMINE
     Indication: DRUG ABUSE
     Route: 065
  220. PHENACETIN [Suspect]
     Active Substance: PHENACETIN
     Indication: DRUG ABUSE
     Route: 065
  221. MIRTAZAPINE. [Suspect]
     Active Substance: MIRTAZAPINE
     Indication: PRODUCT USED FOR UNKNOWN INDICATION
     Route: 065
  222. NORTRIPTYLINE [Suspect]
     Active Substance: NORTRIPTYLINE
     Indication: DRUG ABUSE
     Route: 065
  223. BETAZOLE [Suspect]
     Active Substance: BETAZOLE
     Indication: PRODUCT USED FOR UNKNOWN INDICATION
     Route: 065
  224. ZOLPIDEM [Suspect]
     Active Substance: ZOLPIDEM TARTRATE
     Indication: PRODUCT USED FOR UNKNOWN INDICATION
     Route: 065
  225. CLARITHROMYCIN. [Suspect]
     Active Substance: CLARITHROMYCIN
     Indication: PRODUCT USED FOR UNKNOWN INDICATION
     Route: 065
  226. EMEPRONIUM [Suspect]
     Active Substance: EMEPRONIUM
     Indication: PRODUCT USED FOR UNKNOWN INDICATION
     Route: 065
  227. DENATONIUM BENZOATE [Suspect]
     Active Substance: DENATONIUM BENZOATE
     Indication: PRODUCT USED FOR UNKNOWN INDICATION
     Route: 065
  228. BROMAZEPAM [Suspect]
     Active Substance: BROMAZEPAM
     Indication: DRUG ABUSE
     Route: 065

REACTIONS (9)
  - Death [Fatal]
  - Substance abuse [Fatal]
  - Surgery [Fatal]
  - Haemorrhage [Fatal]
  - Accident [Fatal]
  - Disease progression [Fatal]
  - Malaise [Fatal]
  - Completed suicide [Fatal]
  - Overdose [Fatal]
